FAERS Safety Report 6080172-6 (Version None)
Quarter: 2009Q1

REPORT INFORMATION
  Report Type: 
  Country: None (occurrence: None)
  Receive Date: 20090217
  Receipt Date: 20090205
  Transmission Date: 20090719
  Serious: Yes (Other)
  Sender: FDA-Public Use
  Company Number: US-BAXTER-2009BH002095

PATIENT
  Age: 24 Year
  Sex: Female

DRUGS (2)
  1. DIANEAL [Suspect]
     Indication: PERITONEAL DIALYSIS
     Route: 033
     Dates: start: 20090104
  2. DIANEAL [Suspect]
     Route: 033
     Dates: start: 20070319, end: 20081228

REACTIONS (1)
  - CATHETER RELATED COMPLICATION [None]
